FAERS Safety Report 20810768 (Version 5)
Quarter: 2022Q4

REPORT INFORMATION
  Report Type: Spontaneous
  Country: US (occurrence: US)
  Receive Date: 20220510
  Receipt Date: 20221031
  Transmission Date: 20230113
  Serious: Yes (Other)
  Sender: FDA-Public Use
  Company Number: US-PFIZER INC-202200133110

PATIENT
  Age: 72 Year
  Sex: Female
  Weight: 70.295 kg

DRUGS (4)
  1. XELJANZ [Suspect]
     Active Substance: TOFACITINIB CITRATE
     Indication: Psoriasis
     Dosage: 10 MG, 2X/DAY [SHE DOES TAKE XELJANZ 10 MG TWICE DAILY]
     Route: 048
  2. XELJANZ [Suspect]
     Active Substance: TOFACITINIB CITRATE
     Indication: Crohn^s disease
  3. MODERNA COVID-19 VACCINE [Suspect]
     Active Substance: ELASOMERAN
     Indication: COVID-19 immunisation
     Dosage: DOSE NUMBER UNKNOWN, SINGLE
  4. HUMIRA [Suspect]
     Active Substance: ADALIMUMAB
     Dosage: UNK, WEEKLY (WAS A SHOT, TOOK WEEKLY)

REACTIONS (9)
  - Neuropathy peripheral [Unknown]
  - Crohn^s disease [Unknown]
  - Off label use [Unknown]
  - Feeling abnormal [Unknown]
  - Sleep disorder [Unknown]
  - Fall [Unknown]
  - Balance disorder [Unknown]
  - Psoriasis [Unknown]
  - Arthralgia [Unknown]

NARRATIVE: CASE EVENT DATE: 20220101
